FAERS Safety Report 6932401-1 (Version None)
Quarter: 2010Q3

REPORT INFORMATION
  Report Type: 
  Country: None (occurrence: None)
  Receive Date: 20100819
  Receipt Date: 20100809
  Transmission Date: 20110219
  Serious: Yes (Other)
  Sender: FDA-Public Use
  Company Number: CA-PFIZER INC-2010100405

PATIENT
  Age: 57 Year
  Sex: Male
  Weight: 90.703 kg

DRUGS (2)
  1. LIPITOR [Suspect]
     Indication: CARDIOVASCULAR EVENT PROPHYLAXIS
     Dosage: 20 MG, 1X/DAY
     Route: 048
     Dates: start: 20060101
  2. LIPITOR [Suspect]
     Dosage: 80 MG, 1X/DAY
     Dates: start: 20071101

REACTIONS (3)
  - EYE SWELLING [None]
  - SKIN REACTION [None]
  - STENT PLACEMENT [None]
